FAERS Safety Report 20422650 (Version 2)
Quarter: 2022Q1

REPORT INFORMATION
  Report Type: Spontaneous
  Country: US (occurrence: US)
  Receive Date: 20220203
  Receipt Date: 20220309
  Transmission Date: 20220424
  Serious: Yes (Other)
  Sender: FDA-Public Use
  Company Number: US-AURINIA PHARMACEUTICALS INC.-AUR-000779

PATIENT
  Age: 38 Year
  Sex: Female

DRUGS (1)
  1. LUPKYNIS [Suspect]
     Active Substance: VOCLOSPORIN
     Indication: Lupus nephritis
     Dosage: 23.7 MILLIGRAM, BID
     Route: 048
     Dates: start: 20211116

REACTIONS (6)
  - Coronary artery disease [Unknown]
  - Blister [Not Recovered/Not Resolved]
  - Malaise [Unknown]
  - Herpes zoster [Recovering/Resolving]
  - Road traffic accident [Unknown]
  - Animal bite [Unknown]

NARRATIVE: CASE EVENT DATE: 20211208
